FAERS Safety Report 6019904-1 (Version None)
Quarter: 2008Q4

REPORT INFORMATION
  Report Type: 
  Country: None (occurrence: None)
  Receive Date: 20081223
  Receipt Date: 20081209
  Transmission Date: 20090506
  Serious: Yes (Hospitalization)
  Sender: FDA-Public Use
  Company Number: KV200801039

PATIENT
  Age: 75 Year
  Sex: Female
  Weight: 70.7 kg

DRUGS (9)
  1. ISOSORBIDE MONONITRATE [Suspect]
     Indication: ANGINA PECTORIS
     Dosage: 60 MG QD ORAL
     Route: 048
     Dates: start: 20070101
  2. NEXIUM [Concomitant]
  3. AMITRIPTYLINE HYDROCHLORIDE [Concomitant]
  4. NAPRELAN [Concomitant]
  5. METOPROLOL TARTRATE [Concomitant]
  6. CRESTOR [Concomitant]
  7. SINGULAIR [Concomitant]
  8. PLAVIX [Concomitant]
  9. DARVOCET-N 100 [Concomitant]

REACTIONS (4)
  - HEPATOMEGALY [None]
  - KNEE OPERATION [None]
  - PRODUCT QUALITY ISSUE [None]
  - TREMOR [None]
